FAERS Safety Report 20630046 (Version 5)
Quarter: 2024Q3

REPORT INFORMATION
  Report Type: Report from Study
  Country: CA (occurrence: CA)
  Receive Date: 20220324
  Receipt Date: 20240720
  Transmission Date: 20241017
  Serious: Yes (Other)
  Sender: NOVARTIS
  Company Number: CA-NOVARTISPH-PHHY2019CA077081

PATIENT
  Age: 31 Year
  Sex: Female

DRUGS (4)
  1. ILARIS [Suspect]
     Active Substance: CANAKINUMAB
     Indication: Muckle-Wells syndrome
     Dosage: 150 MG, 8 WEEKS
     Route: 058
     Dates: start: 20190131
  2. ILARIS [Suspect]
     Active Substance: CANAKINUMAB
     Dosage: 150 MG, (EVERY 7 WEEKS)
     Route: 058
  3. COLCHICINE [Concomitant]
     Active Substance: COLCHICINE
     Indication: Product used for unknown indication
     Dosage: UNK
     Route: 065
  4. CELEBREX [Concomitant]
     Active Substance: CELECOXIB
     Indication: Product used for unknown indication
     Dosage: UNK
     Route: 065

REACTIONS (14)
  - Lower respiratory tract infection [Unknown]
  - Immunodeficiency [Unknown]
  - Blood pressure increased [Unknown]
  - Body temperature decreased [Unknown]
  - Condition aggravated [Unknown]
  - Viral infection [Unknown]
  - Malaise [Unknown]
  - Cough [Unknown]
  - Influenza like illness [Unknown]
  - Pyrexia [Unknown]
  - Nausea [Unknown]
  - Vomiting [Unknown]
  - Fatigue [Unknown]
  - Aphonia [Unknown]

NARRATIVE: CASE EVENT DATE: 20190329
